FAERS Safety Report 9387998 (Version 2)
Quarter: 2013Q3

REPORT INFORMATION
  Report Type: Spontaneous
  Country: IT (occurrence: IT)
  Receive Date: 20130708
  Receipt Date: 20130805
  Transmission Date: 20140515
  Serious: Yes (Death)
  Sender: FDA-Public Use
  Company Number: IT-SANOFI-AVENTIS-2013SA066433

PATIENT
  Age: 72 Year
  Sex: Male

DRUGS (12)
  1. TAXOTERE [Suspect]
     Indication: NEOPLASM PROSTATE
     Route: 041
     Dates: start: 201211, end: 201302
  2. ENANTONE [Suspect]
     Indication: PROSTATE CANCER METASTATIC
     Dosage: DOSE:1 UNIT(S)
     Route: 030
     Dates: start: 20110501, end: 20130528
  3. ZOMETA [Suspect]
     Indication: PRODUCT USED FOR UNKNOWN INDICATION
     Route: 042
     Dates: start: 20130221, end: 20130528
  4. TRIATEC [Concomitant]
     Indication: HYPERTENSION
  5. CASODEX [Concomitant]
     Route: 048
     Dates: start: 20121123, end: 20130221
  6. ZANEDIP [Concomitant]
     Indication: HYPERTENSION
  7. GLICONORM [Concomitant]
     Indication: TYPE 2 DIABETES MELLITUS
     Route: 048
  8. SOTALEX [Concomitant]
  9. LUVION [Concomitant]
  10. COUMADIN [Concomitant]
     Dates: end: 20130524
  11. HEPARIN-FRACTION, SODIUM SALT [Concomitant]
     Dosage: 1 VIAL AT MORNING
     Route: 058
  12. LEVEMIR [Concomitant]
     Dosage: DOSE:14 UNIT(S)

REACTIONS (16)
  - Renal failure acute [Fatal]
  - Blood creatinine increased [Fatal]
  - Metabolic acidosis [Fatal]
  - Hyperkalaemia [Fatal]
  - Blood urea increased [Fatal]
  - Anuria [Fatal]
  - Cardiac disorder [Fatal]
  - Electrocardiogram QT prolonged [Fatal]
  - Bundle branch block left [Fatal]
  - Hepatitis cholestatic [Fatal]
  - Alanine aminotransferase increased [Fatal]
  - Aspartate aminotransferase increased [Fatal]
  - Blood bilirubin increased [Fatal]
  - Abdominal pain [Fatal]
  - Gamma-glutamyltransferase increased [Fatal]
  - Jaundice [Fatal]
